FAERS Safety Report 5146225-1 (Version None)
Quarter: 2006Q4

REPORT INFORMATION
  Report Type: 
  Country: None (occurrence: None)
  Receive Date: 20061106
  Receipt Date: 20061106
  Transmission Date: 20070319
  Serious: No
  Sender: FDA-Public Use
  Company Number: None

PATIENT
  Age: 2 Year
  Sex: Female

DRUGS (1)
  1. ROBITUSSIN DM INFANT DROPS UNKNOWN A.H. ROBINS +LT; UNITED STATES + Q [Suspect]
     Indication: DRUG THERAPY
     Dosage: EVERY 4 HOURS PO
     Route: 048
     Dates: start: 20061029, end: 20061030

REACTIONS (2)
  - ERYTHEMA [None]
  - RASH PAPULAR [None]
